FAERS Safety Report 9892585 (Version 1)
Quarter: 2014Q1

REPORT INFORMATION
  Report Type: Spontaneous
  Country: BG (occurrence: BG)
  Receive Date: 20140212
  Receipt Date: 20140212
  Transmission Date: 20141002
  Serious: Yes (Life-Threatening, Hospitalization)
  Sender: FDA-Public Use
  Company Number: PHHY2014BG014642

PATIENT
  Age: 60 Year
  Sex: Female

DRUGS (2)
  1. METHOTREXATE [Suspect]
     Indication: RHEUMATOID ARTHRITIS
     Dosage: 1 MG, EACH 10 DAYS
     Route: 051
  2. METHOTREXATE [Suspect]
     Indication: RHEUMATOID ARTHRITIS
     Route: 048

REACTIONS (13)
  - Haemorrhagic stroke [Unknown]
  - Acute respiratory failure [Recovering/Resolving]
  - Pneumonitis [Recovered/Resolved with Sequelae]
  - Nuchal rigidity [Unknown]
  - Kernig^s sign [Unknown]
  - Tachypnoea [Unknown]
  - Cough [Unknown]
  - Pyrexia [Unknown]
  - Renal failure acute [Unknown]
  - Hypoalbuminaemia [Unknown]
  - Bone marrow failure [Unknown]
  - Pancytopenia [Unknown]
  - Drug intolerance [Unknown]
